FAERS Safety Report 15454991 (Version 2)
Quarter: 2018Q4

REPORT INFORMATION
  Report Type: Spontaneous
  Country: US (occurrence: US)
  Receive Date: 20181002
  Receipt Date: 20181203
  Transmission Date: 20190204
  Serious: Yes (Hospitalization, Other)
  Sender: FDA-Public Use
  Company Number: US-ASTELLAS-2018US042882

PATIENT
  Age: 85 Year
  Sex: Male

DRUGS (9)
  1. ELIQUIS [Interacting]
     Active Substance: APIXABAN
     Indication: CEREBROVASCULAR ACCIDENT PROPHYLAXIS
     Route: 048
     Dates: start: 2016
  2. XTANDI [Suspect]
     Active Substance: ENZALUTAMIDE
     Indication: PROSTATE CANCER
     Dosage: UNK UNK, UNKNOWN FREQ.
     Route: 065
     Dates: start: 201806
  3. AMIODARONE HCL [Interacting]
     Active Substance: AMIODARONE HYDROCHLORIDE
     Indication: HEART RATE IRREGULAR
     Route: 065
  4. ELIQUIS [Interacting]
     Active Substance: APIXABAN
     Indication: ATRIAL FIBRILLATION
  5. POTASSIUM [Concomitant]
     Active Substance: POTASSIUM
     Indication: PRODUCT USED FOR UNKNOWN INDICATION
     Dosage: UNK UNK, UNKNOWN FREQ.
     Route: 065
  6. DILTIAZEM. [Interacting]
     Active Substance: DILTIAZEM
     Indication: HYPERTENSION
     Route: 065
  7. TYLENOL [Concomitant]
     Active Substance: ACETAMINOPHEN
     Indication: PRODUCT USED FOR UNKNOWN INDICATION
     Dosage: UNK UNK, UNKNOWN FREQ.
     Route: 065
  8. CALCIUM [Concomitant]
     Active Substance: CALCIUM
     Indication: PRODUCT USED FOR UNKNOWN INDICATION
     Dosage: UNK UNK, UNKNOWN FREQ.
     Route: 065
  9. FUROSEMIDE. [Concomitant]
     Active Substance: FUROSEMIDE
     Indication: PRODUCT USED FOR UNKNOWN INDICATION
     Dosage: 40 MG, TWICE DAILY (ONE TABLET IN THE MORNING, A HALF TABLET IN AFTERNOON)
     Route: 065

REACTIONS (3)
  - Labelled drug-drug interaction medication error [Unknown]
  - Fluid retention [Unknown]
  - Cardiac disorder [Unknown]

NARRATIVE: CASE EVENT DATE: 201806
